FAERS Safety Report 12157910 (Version 2)
Quarter: 2016Q2

REPORT INFORMATION
  Report Type: Spontaneous
  Country: US (occurrence: US)
  Receive Date: 20160308
  Receipt Date: 20160413
  Transmission Date: 20160815
  Serious: No
  Sender: FDA-Public Use
  Company Number: US-JNJFOC-20150116143

PATIENT
  Age: 78 Year
  Sex: Female

DRUGS (1)
  1. IMBRUVICA [Suspect]
     Active Substance: IBRUTINIB
     Indication: CHRONIC LYMPHOCYTIC LEUKAEMIA
     Route: 048
     Dates: start: 20141013

REACTIONS (7)
  - Dry mouth [Unknown]
  - Eye pruritus [Unknown]
  - Rhinorrhoea [Unknown]
  - Petechiae [Recovering/Resolving]
  - Oral herpes [Not Recovered/Not Resolved]
  - Stomatitis [Unknown]
  - Dry eye [Unknown]

NARRATIVE: CASE EVENT DATE: 201410
